FAERS Safety Report 11591344 (Version 1)
Quarter: 2015Q4

REPORT INFORMATION
  Report Type: Report from Study
  Country: US (occurrence: US)
  Receive Date: 20151004
  Receipt Date: 20151004
  Transmission Date: 20160304
  Serious: No
  Sender: FDA-Public Use
  Company Number: US-AMGEN-USASP2015101933

PATIENT
  Sex: Male

DRUGS (1)
  1. ENBREL [Suspect]
     Active Substance: ETANERCEPT
     Indication: RHEUMATOID ARTHRITIS
     Dosage: 50 MG, QWK
     Route: 065

REACTIONS (7)
  - C-reactive protein increased [Unknown]
  - Laboratory test abnormal [Unknown]
  - Migraine [Unknown]
  - Rheumatoid factor increased [Unknown]
  - Back pain [Unknown]
  - Weight increased [Unknown]
  - Blood test abnormal [Unknown]
